FAERS Safety Report 8507759-2 (Version None)
Quarter: 2012Q3

REPORT INFORMATION
  Report Type: 
  Country: None (occurrence: None)
  Receive Date: 20120709
  Receipt Date: 20120709
  Transmission Date: 20120928
  Serious: No
  Sender: FDA-Public Use
  Company Number: None

PATIENT

DRUGS (2)
  1. ASPIRIN [Suspect]
     Dosage: TABLET, DELAYED RELEASE  (ENTRIC COATED), ORAL
     Route: 048
  2. ASPIRIN [Suspect]
     Dosage: TABLET,  CHEWABLE, ORAL

REACTIONS (3)
  - MEDICATION ERROR [None]
  - CIRCUMSTANCE OR INFORMATION CAPABLE OF LEADING TO MEDICATION ERROR [None]
  - PRODUCT COMMINGLING [None]
